FAERS Safety Report 9246131 (Version 1)
Quarter: 2013Q2

REPORT INFORMATION
  Report Type: Spontaneous
  Country: US (occurrence: US)
  Receive Date: 20130422
  Receipt Date: 20130422
  Transmission Date: 20140414
  Serious: No
  Sender: FDA-Public Use
  Company Number: US-PFIZER INC-2013120747

PATIENT
  Age: 78 Year
  Sex: Female

DRUGS (6)
  1. XELJANZ [Suspect]
     Indication: RHEUMATOID ARTHRITIS
     Dosage: 5 MG, 2X/DAY
     Route: 048
     Dates: start: 201304
  2. LISINOPRIL [Concomitant]
     Dosage: 10 MG, UNK
  3. ADVAIR DISKUS [Concomitant]
     Dosage: UNK
  4. ISOSORBIDE MN [Concomitant]
     Dosage: 10 MG, UNK
  5. SPIRIVA [Concomitant]
     Dosage: UNK, 18 MCG CP
  6. METOPROLOL SUCCINATE [Concomitant]
     Dosage: 50 MG, UNK

REACTIONS (5)
  - Hepatic enzyme increased [Unknown]
  - Rhinorrhoea [Unknown]
  - Abdominal discomfort [Recovered/Resolved]
  - Gastrooesophageal reflux disease [Recovered/Resolved]
  - Diarrhoea [Unknown]
